FAERS Safety Report 5705214-6 (Version None)
Quarter: 2008Q2

REPORT INFORMATION
  Report Type: 
  Country: None (occurrence: None)
  Receive Date: 20080410
  Receipt Date: 20080401
  Transmission Date: 20081010
  Serious: Yes (Death, Other)
  Sender: FDA-Public Use
  Company Number: 083-20785-08040382

PATIENT

DRUGS (4)
  1. THALOMID [Suspect]
     Indication: MULTIPLE MYELOMA
     Dosage: 100 MG, QD, ORAL
     Route: 048
  2. PEGYLATED LIPOSOMAL DOXORUBICIN [Concomitant]
  3. DEXAMETHASONE TAB [Concomitant]
  4. VELCADE [Concomitant]

REACTIONS (7)
  - ASTHENIA [None]
  - DEEP VEIN THROMBOSIS [None]
  - DIARRHOEA [None]
  - MYOCARDIAL INFARCTION [None]
  - NEUROPATHY PERIPHERAL [None]
  - SKIN TOXICITY [None]
  - THROMBOCYTOPENIA [None]
